FAERS Safety Report 25757273 (Version 2)
Quarter: 2025Q3

REPORT INFORMATION
  Report Type: Spontaneous
  Country: US (occurrence: US)
  Receive Date: 20250903
  Receipt Date: 20250929
  Transmission Date: 20251020
  Serious: No
  Sender: BAUSCH AND LOMB
  Company Number: US-BAUSCHBL-2025BNL015362

PATIENT
  Age: 56 Year
  Sex: Female

DRUGS (1)
  1. MIEBO [Suspect]
     Active Substance: PERFLUOROHEXYLOCTANE
     Indication: Dry eye
     Route: 047

REACTIONS (4)
  - Vision blurred [Recovered/Resolved]
  - Dry eye [Unknown]
  - Inability to afford medication [Unknown]
  - Therapy interrupted [Unknown]
